FAERS Safety Report 21626724 (Version 1)
Quarter: 2022Q4

REPORT INFORMATION
  Report Type: Spontaneous
  Country: US (occurrence: US)
  Receive Date: 20221122
  Receipt Date: 20221122
  Transmission Date: 20230113
  Serious: Yes (Other)
  Sender: FDA-Public Use
  Company Number: US-CHEPLA-2022010594

PATIENT
  Age: 34 Year

DRUGS (3)
  1. GANCICLOVIR [Suspect]
     Active Substance: GANCICLOVIR
     Indication: Cytomegalovirus infection
  2. GANCICLOVIR [Suspect]
     Active Substance: GANCICLOVIR
     Indication: Cytomegalovirus infection
  3. VALGANCICLOVIR [Suspect]
     Active Substance: VALGANCICLOVIR
     Indication: Cytomegalovirus infection
     Dosage: 150 MG/KG FOLLOWED BY SIX DOSES OF 100 MG/KG UNTIL DNAEMIA NEGATIVE

REACTIONS (3)
  - Hypogammaglobulinaemia [Unknown]
  - Drug ineffective [Unknown]
  - Product use in unapproved indication [Unknown]
